FAERS Safety Report 12425529 (Version 2)
Quarter: 2016Q2

REPORT INFORMATION
  Report Type: Report from Study
  Country: NL (occurrence: NL)
  Receive Date: 20160601
  Receipt Date: 20160627
  Transmission Date: 20160815
  Serious: Yes (Other)
  Sender: FDA-Public Use
  Company Number: PHHY2014NL009281

PATIENT
  Age: 71 Year
  Sex: Male

DRUGS (3)
  1. ZOMETA [Suspect]
     Active Substance: ZOLEDRONIC ACID
     Indication: PROSTATE CANCER METASTATIC
     Dosage: 4 MG PER 100 ML , ONCE EVERY 4 WEEKS
     Route: 042
     Dates: start: 2011, end: 201605
  2. ONDANSETRON [Concomitant]
     Active Substance: ONDANSETRON
     Indication: PRODUCT USED FOR UNKNOWN INDICATION
     Dosage: 8 MG, BID
     Route: 048
  3. FENTANYL. [Concomitant]
     Active Substance: FENTANYL
     Indication: PRODUCT USED FOR UNKNOWN INDICATION
     Dosage: 25 UG/HR, UNK
     Route: 065

REACTIONS (8)
  - Prostate cancer metastatic [Not Recovered/Not Resolved]
  - Decreased appetite [Unknown]
  - Terminal state [Not Recovered/Not Resolved]
  - Weight decreased [Unknown]
  - Pain [Unknown]
  - Metastasis [Not Recovered/Not Resolved]
  - Malignant neoplasm progression [Not Recovered/Not Resolved]
  - Cachexia [Unknown]
